FAERS Safety Report 21245849 (Version 1)
Quarter: 2022Q3

REPORT INFORMATION
  Report Type: Report from Study
  Country: CN (occurrence: CN)
  Receive Date: 20220824
  Receipt Date: 20220824
  Transmission Date: 20221027
  Serious: Yes (Other)
  Sender: FDA-Public Use
  Company Number: CN-SUN PHARMACEUTICAL INDUSTRIES LTD-2022R1-351778

PATIENT
  Age: 33 Year
  Sex: Female

DRUGS (2)
  1. DEXAMETHASONE [Suspect]
     Active Substance: DEXAMETHASONE
     Indication: Anaphylactoid syndrome of pregnancy
     Dosage: 20 MILLIGRAM
     Route: 065
  2. PAPAVERINE [Suspect]
     Active Substance: PAPAVERINE
     Indication: Anaphylactoid syndrome of pregnancy
     Dosage: 30 MILLIGRAM
     Route: 065

REACTIONS (1)
  - Therapy non-responder [Unknown]
